FAERS Safety Report 19517902 (Version 2)
Quarter: 2024Q3

REPORT INFORMATION
  Report Type: Spontaneous
  Country: FR (occurrence: FR)
  Receive Date: 20210712
  Receipt Date: 20240715
  Transmission Date: 20241017
  Serious: Yes (Hospitalization, Other)
  Sender: AUROBINDO
  Company Number: FR-AFSSAPS-PP20210947

PATIENT
  Age: 60 Year
  Sex: Male
  Weight: 93 kg

DRUGS (30)
  1. ACYCLOVIR [Suspect]
     Active Substance: ACYCLOVIR
     Indication: Viral infection
     Dosage: 1 GRAM, ONCE A DAY
     Route: 042
     Dates: start: 20210527, end: 20210530
  2. FLUCONAZOLE [Suspect]
     Active Substance: FLUCONAZOLE
     Indication: Antifungal prophylaxis
     Dosage: 200 MILLIGRAM, ONCE A DAY
     Route: 048
     Dates: start: 20210521, end: 20210527
  3. LANSOPRAZOLE [Suspect]
     Active Substance: LANSOPRAZOLE
     Indication: Gastrointestinal disorder prophylaxis
     Dosage: 30 MILLIGRAM, ONCE A DAY
     Route: 048
     Dates: start: 20210505, end: 20210601
  4. LANSOPRAZOLE [Suspect]
     Active Substance: LANSOPRAZOLE
     Dosage: 30 MILLIGRAM, ONCE A DAY
     Route: 048
     Dates: start: 20210606
  5. AMIODARONE [Suspect]
     Active Substance: AMIODARONE
     Indication: Product used for unknown indication
     Dosage: UNK
     Route: 065
     Dates: start: 20210607
  6. AMIODARONE [Suspect]
     Active Substance: AMIODARONE
     Dosage: UNK
     Route: 065
     Dates: start: 20210531, end: 20210602
  7. CEFTAZIDIME [Suspect]
     Active Substance: CEFTAZIDIME
     Indication: Product used for unknown indication
     Dosage: UNK
     Route: 065
     Dates: start: 20210616
  8. CEFTAZIDIME [Suspect]
     Active Substance: CEFTAZIDIME
     Dosage: UNK
     Route: 065
     Dates: start: 20210518, end: 20210519
  9. FUROSEMIDE [Suspect]
     Active Substance: FUROSEMIDE
     Indication: Product used for unknown indication
     Dosage: UNK
     Route: 065
     Dates: start: 20210613, end: 20210617
  10. FUROSEMIDE [Suspect]
     Active Substance: FUROSEMIDE
     Dosage: UNK
     Route: 065
     Dates: start: 20210513, end: 20210518
  11. METRONIDAZOLE [Suspect]
     Active Substance: METRONIDAZOLE
     Indication: Bacterial infection
     Dosage: UNK
     Route: 065
     Dates: start: 20210511, end: 20210523
  12. LEVOFLOXACIN [Suspect]
     Active Substance: LEVOFLOXACIN
     Indication: Bacterial infection
     Dosage: UNK
     Route: 065
     Dates: start: 20210518, end: 20210523
  13. HEPARIN [Suspect]
     Active Substance: HEPARIN SODIUM
     Indication: Cardiovascular event prophylaxis
     Dosage: 6000 INTERNATIONAL UNIT, ONCE A DAY
     Route: 058
     Dates: start: 20210505
  14. MIDAZOLAM [Suspect]
     Active Substance: MIDAZOLAM
     Indication: Anaesthesia
     Dosage: 5 MILLIGRAM, ONCE A DAY
     Route: 042
     Dates: start: 20210505, end: 20210607
  15. PROPOFOL [Suspect]
     Active Substance: PROPOFOL
     Indication: Anaesthesia
     Dosage: 200 MILLIGRAM, ONCE A DAY
     Route: 042
     Dates: start: 20210505, end: 20210610
  16. SUFENTANIL [Suspect]
     Active Substance: SUFENTANIL
     Indication: Sedation
     Dosage: UNK (0.5 MICROGRAMS / KG / HOUR)
     Route: 042
     Dates: start: 20210505, end: 20210614
  17. VANCOMYCIN [Suspect]
     Active Substance: VANCOMYCIN
     Indication: Bacterial infection
     Dosage: 1 GRAM, ONCE A DAY
     Route: 042
     Dates: start: 20210509, end: 20210528
  18. ATRACURIUM BESYLATE [Suspect]
     Active Substance: ATRACURIUM BESYLATE
     Indication: Sedation
     Dosage: UNK
     Route: 065
     Dates: start: 20210514, end: 20210527
  19. AMIKACIN [Suspect]
     Active Substance: AMIKACIN
     Indication: Bacterial infection
     Dosage: UNK
     Route: 065
     Dates: start: 20210515
  20. BACTRIM [Suspect]
     Active Substance: SULFAMETHOXAZOLE\TRIMETHOPRIM
     Indication: Bacterial infection
     Dosage: UNK
     Route: 065
     Dates: start: 20210521, end: 20210523
  21. COLISTIN [Suspect]
     Active Substance: COLISTIN
     Indication: Bacterial infection
     Dosage: UNK
     Route: 065
     Dates: start: 20210604, end: 20210613
  22. CEFOTAXIME SODIUM [Suspect]
     Active Substance: CEFOTAXIME SODIUM
     Indication: Bacterial infection
     Dosage: UNK
     Route: 065
     Dates: start: 20210512, end: 20210515
  23. CEFEPIME [Suspect]
     Active Substance: CEFEPIME HYDROCHLORIDE
     Indication: Bacterial infection
     Dosage: UNK
     Route: 065
     Dates: start: 20210509, end: 20210523
  24. CISATRACURIUM [Suspect]
     Active Substance: CISATRACURIUM
     Indication: Sedation
     Dosage: UNK
     Route: 065
     Dates: start: 20210527, end: 20210528
  25. CASPOFUNGIN ACETATE [Suspect]
     Active Substance: CASPOFUNGIN ACETATE
     Indication: Antifungal prophylaxis
     Dosage: UNK
     Route: 065
     Dates: start: 20210520, end: 20210520
  26. GANCICLOVIR [Suspect]
     Active Substance: GANCICLOVIR
     Indication: Viral infection
     Dosage: UNK
     Route: 065
     Dates: start: 20210526, end: 20210526
  27. HEPARIN SODIUM [Suspect]
     Active Substance: HEPARIN SODIUM
     Indication: Cardiovascular event prophylaxis
     Dosage: 6000 INTERNATIONAL UNIT, ONCE A DAY
     Route: 058
     Dates: start: 20210505
  28. PIPERACILLIN SODIUM\TAZOBACTAM SODIUM [Suspect]
     Active Substance: PIPERACILLIN SODIUM\TAZOBACTAM SODIUM
     Indication: Bacterial infection
     Dosage: UNK
     Route: 065
     Dates: start: 20210505, end: 20210506
  29. PIPERACILLIN SODIUM\TAZOBACTAM SODIUM [Suspect]
     Active Substance: PIPERACILLIN SODIUM\TAZOBACTAM SODIUM
     Dosage: UNK
     Route: 065
     Dates: start: 20210406, end: 20210507
  30. TIGECYCLINE [Suspect]
     Active Substance: TIGECYCLINE
     Indication: Bacterial infection
     Dosage: UNK
     Route: 065
     Dates: start: 20210606, end: 20210613

REACTIONS (3)
  - Drug reaction with eosinophilia and systemic symptoms [Recovering/Resolving]
  - Clostridium difficile colitis [Unknown]
  - Klebsiella infection [Unknown]

NARRATIVE: CASE EVENT DATE: 20210509
